FAERS Safety Report 20678817 (Version 3)
Quarter: 2023Q1

REPORT INFORMATION
  Report Type: Report from Study
  Country: US (occurrence: None)
  Receive Date: 20220406
  Receipt Date: 20230315
  Transmission Date: 20230417
  Serious: Yes (Death, Hospitalization, Other)
  Sender: FDA-Public Use
  Company Number: US-ROCHE-3013024

PATIENT
  Age: 60 Year
  Sex: Female
  Weight: 63.560 kg

DRUGS (8)
  1. ATEZOLIZUMAB [Suspect]
     Active Substance: ATEZOLIZUMAB
     Indication: Neoplasm
     Dosage: LAST DOSE : 08/FEB/2022
     Route: 065
     Dates: start: 20211214
  2. TIVOZANIB [Suspect]
     Active Substance: TIVOZANIB
     Indication: Neoplasm
     Dosage: LAST DOSE : 08/FEB/2022
     Route: 065
     Dates: start: 20211214
  3. ATORVASTATIN [Concomitant]
     Active Substance: ATORVASTATIN
     Indication: Hyperlipidaemia
     Route: 048
     Dates: start: 20200107
  4. LORAZEPAM [Concomitant]
     Active Substance: LORAZEPAM
     Indication: Anxiety
     Route: 048
     Dates: start: 20161028
  5. METFORMIN [Concomitant]
     Active Substance: METFORMIN HYDROCHLORIDE
  6. CANNABIDIOL\HERBALS [Concomitant]
     Active Substance: CANNABIDIOL\HERBALS
  7. ONDANSETRON [Concomitant]
     Active Substance: ONDANSETRON
  8. LEVOTHYROXINE [Concomitant]
     Active Substance: LEVOTHYROXINE

REACTIONS (6)
  - Pleural effusion [Not Recovered/Not Resolved]
  - Pneumothorax [Recovered/Resolved]
  - Disease progression [Fatal]
  - Fatigue [Recovered/Resolved with Sequelae]
  - Non-cardiac chest pain [Recovered/Resolved with Sequelae]
  - Dyspnoea [Recovered/Resolved with Sequelae]

NARRATIVE: CASE EVENT DATE: 20220124
